FAERS Safety Report 6021199-X (Version None)
Quarter: 2008Q4

REPORT INFORMATION
  Report Type: 
  Country: None (occurrence: None)
  Receive Date: 20081222
  Receipt Date: 20081208
  Transmission Date: 20090506
  Serious: Yes (Other)
  Sender: FDA-Public Use
  Company Number: 230067K08CAN

PATIENT
  Sex: Female

DRUGS (4)
  1. REBIF [Suspect]
     Indication: MULTIPLE SCLEROSIS
     Dosage: 44 MCG. 3 IN 1 WEEKS
     Dates: start: 20010702, end: 20081107
  2. REBIF [Suspect]
     Indication: RELAPSING-REMITTING MULTIPLE SCLEROSIS
     Dosage: 44 MCG. 3 IN 1 WEEKS
     Dates: start: 20010702, end: 20081107
  3. REBIF [Suspect]
     Indication: MULTIPLE SCLEROSIS
     Dosage: 44 MCG. 3 IN 1 WEEKS
     Dates: start: 20081208
  4. REBIF [Suspect]
     Indication: RELAPSING-REMITTING MULTIPLE SCLEROSIS
     Dosage: 44 MCG. 3 IN 1 WEEKS
     Dates: start: 20081208

REACTIONS (1)
  - DEAFNESS UNILATERAL [None]
